FAERS Safety Report 9061966 (Version 2)
Quarter: 2013Q1

REPORT INFORMATION
  Report Type: Spontaneous
  Country: US (occurrence: US)
  Receive Date: 20130128
  Receipt Date: 20130320
  Transmission Date: 20140127
  Serious: Yes (Death, Hospitalization, Other)
  Sender: FDA-Public Use
  Company Number: US-JNJFOC-20130111207

PATIENT
  Sex: Male

DRUGS (4)
  1. REMICADE [Suspect]
     Indication: CROHN^S DISEASE
     Dosage: LAST DOSE
     Route: 042
     Dates: start: 20130109
  2. REMICADE [Suspect]
     Indication: CROHN^S DISEASE
     Route: 042
     Dates: start: 201208
  3. PREDNISONE [Concomitant]
     Route: 065
  4. PENTASA [Concomitant]
     Route: 065

REACTIONS (4)
  - Cardio-respiratory arrest [Fatal]
  - Pyrexia [Unknown]
  - Pulmonary oedema [Unknown]
  - Hospitalisation [Unknown]
